FAERS Safety Report 24670029 (Version 1)
Quarter: 2024Q4

REPORT INFORMATION
  Report Type: Spontaneous
  Country: US (occurrence: None)
  Receive Date: 20241126
  Receipt Date: 20241126
  Transmission Date: 20250114
  Serious: Yes (Disabling, Other)
  Sender: Public
  Company Number: None

PATIENT
  Age: 53 Year
  Sex: Female

DRUGS (6)
  1. ESTRADIOL [Suspect]
     Active Substance: ESTRADIOL
     Indication: Hot flush
     Dosage: OTHER QUANTITY : 1 TABLET(S);?FREQUENCY : DAILY;?
     Route: 048
     Dates: start: 20240726, end: 20241015
  2. ESTRADIOL [Suspect]
     Active Substance: ESTRADIOL
     Indication: Night sweats
  3. ESTRADIOL [Suspect]
     Active Substance: ESTRADIOL
     Indication: Ill-defined disorder
  4. PROGESTERONE [Suspect]
     Active Substance: PROGESTERONE
     Indication: Hot flush
     Dosage: OTHER QUANTITY : 1 CAPSULE(S);?OTHER FREQUENCY : CALENDAR DAY 1-12;?
     Route: 048
     Dates: start: 20240801, end: 20241012
  5. PROGESTERONE [Suspect]
     Active Substance: PROGESTERONE
     Indication: Night sweats
  6. PROGESTERONE [Suspect]
     Active Substance: PROGESTERONE
     Indication: Ill-defined disorder

REACTIONS (3)
  - Product communication issue [None]
  - Product use complaint [None]
  - Gastrooesophageal reflux disease [None]

NARRATIVE: CASE EVENT DATE: 20241015
